FAERS Safety Report 7814025-7 (Version None)
Quarter: 2011Q4

REPORT INFORMATION
  Report Type: 
  Country: None (occurrence: None)
  Receive Date: 20111014
  Receipt Date: 20111003
  Transmission Date: 20120403
  Serious: Yes (Hospitalization)
  Sender: FDA-Public Use
  Company Number: CA-JNJFOC-20111001594

PATIENT
  Sex: Female
  Weight: 105 kg

DRUGS (12)
  1. CYMBALTA [Concomitant]
     Route: 065
  2. METHOTREXATE [Concomitant]
     Route: 048
  3. ZOPLICONE [Concomitant]
     Route: 065
  4. FOLIC ACID [Concomitant]
     Route: 065
  5. METOCLOPRAMIDE [Concomitant]
     Route: 065
  6. OXYCONTIN [Concomitant]
     Route: 065
  7. PERCOCET [Concomitant]
     Route: 065
  8. SUCRALFATE [Concomitant]
     Route: 065
  9. DULOXETIME HYDROCHLORIDE [Concomitant]
     Route: 065
  10. REMICADE [Suspect]
     Indication: UVEITIS
     Route: 042
     Dates: start: 20040101
  11. INSULIN [Concomitant]
     Route: 065
  12. LYRICA [Concomitant]
     Route: 065

REACTIONS (2)
  - DIARRHOEA [None]
  - JOINT SWELLING [None]
